FAERS Safety Report 7590869-4 (Version None)
Quarter: 2011Q3

REPORT INFORMATION
  Report Type: 
  Country: None (occurrence: None)
  Receive Date: 20110705
  Receipt Date: 20110629
  Transmission Date: 20111222
  Serious: Yes (Other)
  Sender: FDA-Public Use
  Company Number: JP-B.I. PHARMACEUTICALS,INC./RIDGEFIELD-2011-BP-16618NB

PATIENT
  Age: 55 Year
  Sex: Male

DRUGS (15)
  1. MIGLITOL [Concomitant]
     Dosage: NR
     Route: 065
  2. CALBLOCK [Concomitant]
     Dosage: NR
     Route: 065
  3. ZETIA [Concomitant]
     Dosage: NR
     Route: 065
  4. VALSARTAN  AND HYDROCHLOROTHIAZIDE [Concomitant]
     Dosage: NR
     Route: 065
  5. ZOLPIDEM [Concomitant]
     Dosage: NR
     Route: 065
  6. AMIODARONE HCL [Concomitant]
     Dosage: NR
     Route: 065
  7. KREMEZIN [Concomitant]
     Dosage: NR
     Route: 065
  8. CRESTOR [Concomitant]
     Dosage: NR
     Route: 065
  9. PERINDOPRIL ERBUMINE [Concomitant]
     Dosage: NR
     Route: 065
  10. BROMANOME [Concomitant]
     Dosage: NR
     Route: 065
  11. BISOPROLOL FUMARATE [Concomitant]
     Dosage: NR
     Route: 065
  12. PRADAXA [Suspect]
     Indication: ATRIAL FIBRILLATION
     Dosage: 300 MG
     Route: 048
     Dates: start: 20110513, end: 20110624
  13. CILOSTAZOL [Suspect]
     Indication: PROPHYLAXIS
     Route: 048
     Dates: start: 20110513
  14. GLACTIV [Concomitant]
  15. LASIX [Concomitant]
     Dosage: NR
     Route: 065

REACTIONS (1)
  - RENAL IMPAIRMENT [None]
